FAERS Safety Report 21332897 (Version 1)
Quarter: 2022Q3

REPORT INFORMATION
  Report Type: Spontaneous
  Country: JP (occurrence: JP)
  Receive Date: 20220914
  Receipt Date: 20220914
  Transmission Date: 20221026
  Serious: Yes (Death, Life-Threatening)
  Sender: FDA-Public Use
  Company Number: JP-CHUGAI-2022020336AA

PATIENT
  Age: 59 Year
  Sex: Female
  Weight: 48.4 kg

DRUGS (6)
  1. AVASTIN [Suspect]
     Active Substance: BEVACIZUMAB
     Indication: Cervix carcinoma
     Dosage: 15 MILLIGRAM/KILOGRAM, ONCE/3WEEKS
     Route: 041
  2. AVASTIN [Suspect]
     Active Substance: BEVACIZUMAB
     Dosage: 720 MILLIGRAM, ONCE/3WEEKS
     Route: 041
     Dates: start: 20220309, end: 20220330
  3. AVASTIN [Suspect]
     Active Substance: BEVACIZUMAB
     Dosage: 670 MILLIGRAM, SINGLE
     Route: 041
     Dates: start: 20220420, end: 20220420
  4. AVASTIN [Suspect]
     Active Substance: BEVACIZUMAB
     Dosage: 650 MILLIGRAM, SINGLE
     Route: 041
     Dates: start: 20220511, end: 20220511
  5. PACLITAXEL [Concomitant]
     Active Substance: PACLITAXEL
     Indication: Cervix carcinoma
     Dosage: UNK
     Route: 041
     Dates: start: 20220309, end: 20220511
  6. CISPLATIN [Concomitant]
     Active Substance: CISPLATIN
     Indication: Cervix carcinoma
     Dosage: UNK
     Route: 041
     Dates: start: 20220309, end: 20220511

REACTIONS (2)
  - Gastric perforation [Recovering/Resolving]
  - Disease progression [Fatal]

NARRATIVE: CASE EVENT DATE: 20220516
